FAERS Safety Report 6411665-7 (Version None)
Quarter: 2009Q4

REPORT INFORMATION
  Report Type: 
  Country: None (occurrence: None)
  Receive Date: 20091023
  Receipt Date: 20091009
  Transmission Date: 20100525
  Serious: Yes (Other)
  Sender: FDA-Public Use
  Company Number: PT-ROCHE-662778

PATIENT
  Age: 49 Year
  Sex: Female
  Weight: 50 kg

DRUGS (5)
  1. PEGASYS [Suspect]
     Indication: HEPATITIS C
     Dosage: UNIT REPORTED AS MCG. DOSE DECREASED.
     Route: 058
     Dates: start: 20080606, end: 20080714
  2. PEGASYS [Suspect]
     Route: 058
     Dates: start: 20080714, end: 20080804
  3. RIBAVIRIN [Suspect]
     Indication: HEPATITIS C
     Dosage: FREQUENCY: PER DAY. DOSE REDUCED.
     Route: 048
     Dates: start: 20080606
  4. RIBAVIRIN [Suspect]
     Route: 048
     Dates: start: 20080804, end: 20080905
  5. PEG-INTRON [Suspect]
     Indication: DRUG USE FOR UNKNOWN INDICATION
     Dosage: DRUG NAME: PEGINTRON (PEGINTERFERON ALFA-2B) 0,5
     Route: 058
     Dates: start: 20080804, end: 20080905

REACTIONS (11)
  - ANAEMIA [None]
  - ARTHRALGIA [None]
  - EPISTAXIS [None]
  - MELAENA [None]
  - METRORRHAGIA [None]
  - PYREXIA [None]
  - RECTAL HAEMORRHAGE [None]
  - THROMBOCYTOPENIA [None]
  - TRANSAMINASES INCREASED [None]
  - VIRAL LOAD INCREASED [None]
  - WEIGHT DECREASED [None]
